FAERS Safety Report 8290780-X (Version None)
Quarter: 2012Q2

REPORT INFORMATION
  Report Type: 
  Country: None (occurrence: None)
  Receive Date: 20120412
  Receipt Date: 20120412
  Transmission Date: 20120825
  Serious: Yes (Other)
  Sender: FDA-Public Use
  Company Number: None

PATIENT
  Age: 22 Year
  Sex: Male
  Weight: 90.2 kg

DRUGS (1)
  1. LAMOTRIGINE [Suspect]
     Indication: PARTIAL SEIZURES
     Dosage: 25MG TABS TRA TAKE 1 PILL WEEKLY PO
     Route: 048

REACTIONS (9)
  - INSOMNIA [None]
  - CLAUSTROPHOBIA [None]
  - ACTIVITIES OF DAILY LIVING IMPAIRED [None]
  - ABDOMINAL DISCOMFORT [None]
  - ANXIETY [None]
  - OBSESSIVE-COMPULSIVE DISORDER [None]
  - NAUSEA [None]
  - PSYCHOMOTOR HYPERACTIVITY [None]
  - VOMITING [None]
